FAERS Safety Report 11164152 (Version 1)
Quarter: 2015Q2

REPORT INFORMATION
  Report Type: Spontaneous
  Country: FR (occurrence: FR)
  Receive Date: 20150604
  Receipt Date: 20150604
  Transmission Date: 20150821
  Serious: Yes (Other)
  Sender: FDA-Public Use
  Company Number: FR-JNJFOC-20150520312

PATIENT
  Age: 74 Year
  Sex: Male

DRUGS (13)
  1. DUROGESIC [Suspect]
     Active Substance: FENTANYL
     Indication: METASTATIC PAIN
     Route: 062
     Dates: start: 20150512
  2. DUROGESIC [Suspect]
     Active Substance: FENTANYL
     Indication: METASTATIC PAIN
     Route: 062
     Dates: start: 20150510
  3. PARACETAMOL [Concomitant]
     Active Substance: ACETAMINOPHEN
     Indication: PRODUCT USED FOR UNKNOWN INDICATION
     Route: 065
  4. MACROGOL STEARATE [Concomitant]
     Indication: PRODUCT USED FOR UNKNOWN INDICATION
     Route: 065
  5. DUROGESIC [Suspect]
     Active Substance: FENTANYL
     Indication: METASTATIC PAIN
     Route: 062
  6. ACTISKENAN [Suspect]
     Active Substance: MORPHINE SULFATE
     Indication: METASTATIC PAIN
     Route: 065
     Dates: start: 20150422
  7. TAMSULOSIN [Concomitant]
     Active Substance: TAMSULOSIN
     Indication: PRODUCT USED FOR UNKNOWN INDICATION
     Route: 065
  8. SPIRONOLACTONE. [Concomitant]
     Active Substance: SPIRONOLACTONE
     Indication: PRODUCT USED FOR UNKNOWN INDICATION
     Route: 065
  9. PANTOPRAZOLE [Concomitant]
     Active Substance: PANTOPRAZOLE SODIUM
     Indication: PRODUCT USED FOR UNKNOWN INDICATION
     Route: 065
  10. PREDNISOLONE. [Concomitant]
     Active Substance: PREDNISOLONE
     Indication: PRODUCT USED FOR UNKNOWN INDICATION
     Route: 065
  11. ACTISKENAN [Suspect]
     Active Substance: MORPHINE SULFATE
     Indication: METASTATIC PAIN
     Dosage: ONE DOSAGE ONCE EVERY 6 HOURS IF NEEDED
     Route: 065
  12. FUROSEMIDE. [Concomitant]
     Active Substance: FUROSEMIDE
     Indication: PRODUCT USED FOR UNKNOWN INDICATION
     Route: 065
  13. CLOPIDOGREL [Concomitant]
     Active Substance: CLOPIDOGREL BISULFATE
     Indication: PRODUCT USED FOR UNKNOWN INDICATION
     Route: 065

REACTIONS (2)
  - Fall [Recovered/Resolved]
  - Encephalopathy [Recovered/Resolved]

NARRATIVE: CASE EVENT DATE: 20150511
